FAERS Safety Report 8312802-X (Version None)
Quarter: 2012Q2

REPORT INFORMATION
  Report Type: 
  Country: None (occurrence: None)
  Receive Date: 20120426
  Receipt Date: 20120419
  Transmission Date: 20120825
  Serious: No
  Sender: FDA-Public Use
  Company Number: US-PFIZER INC-2012097813

PATIENT
  Sex: Female
  Weight: 58.957 kg

DRUGS (5)
  1. XALATAN [Suspect]
     Indication: GLAUCOMA
     Dosage: UNKNOWN DOSE, ONE DROP IN EACH EYE
     Route: 047
  2. TENORMIN [Concomitant]
     Indication: HYPERTENSION
     Dosage: UNK
  3. CELEXA [Concomitant]
     Indication: ANXIETY
     Dosage: UNK
  4. RESTASIS [Concomitant]
     Dosage: UNK
     Route: 047
  5. COSOPT [Concomitant]
     Dosage: UNK
     Route: 047

REACTIONS (2)
  - NEUROPATHY PERIPHERAL [None]
  - HYPOAESTHESIA [None]
